FAERS Safety Report 11059878 (Version 1)
Quarter: 2015Q2

REPORT INFORMATION
  Report Type: Spontaneous
  Country: JP (occurrence: JP)
  Receive Date: 20150423
  Receipt Date: 20150423
  Transmission Date: 20150821
  Serious: Yes (Hospitalization)
  Sender: FDA-Public Use
  Company Number: JP-PFIZER INC-2014298455

PATIENT
  Age: 82 Year
  Sex: Female
  Weight: 37 kg

DRUGS (2)
  1. VEMAS COMBINATION TABLETS [Concomitant]
     Indication: CONSTIPATION
     Dosage: 6 DF, DAILY
     Route: 048
     Dates: start: 20140830
  2. NORVASC [Suspect]
     Active Substance: AMLODIPINE BESYLATE
     Indication: HYPERTENSION
     Dosage: 2.5 MG, DAILY
     Route: 048
     Dates: start: 20140801, end: 20140927

REACTIONS (1)
  - Immune thrombocytopenic purpura [Recovered/Resolved]

NARRATIVE: CASE EVENT DATE: 20141014
